FAERS Safety Report 6966948-9 (Version None)
Quarter: 2010Q3

REPORT INFORMATION
  Report Type: 
  Country: None (occurrence: None)
  Receive Date: 20100906
  Receipt Date: 20100826
  Transmission Date: 20110219
  Serious: Yes (Hospitalization)
  Sender: FDA-Public Use
  Company Number: ES-BRISTOL-MYERS SQUIBB COMPANY-15268923

PATIENT
  Sex: Female

DRUGS (1)
  1. ERBITUX [Suspect]
     Route: 042

REACTIONS (1)
  - PNEUMATOSIS INTESTINALIS [None]
